FAERS Safety Report 20114049 (Version 1)
Quarter: 2021Q4

REPORT INFORMATION
  Report Type: Spontaneous
  Country: US (occurrence: US)
  Receive Date: 20211125
  Receipt Date: 20211125
  Transmission Date: 20220303
  Serious: No
  Sender: FDA-Public Use
  Company Number: US-ORGANON-O2111USA002255

PATIENT
  Sex: Female

DRUGS (1)
  1. HYZAAR [Suspect]
     Active Substance: HYDROCHLOROTHIAZIDE\LOSARTAN POTASSIUM
     Indication: Blood pressure measurement
     Dosage: UNK, REPORTED AS AFTER BREAKFAST (QD)
     Route: 048
     Dates: start: 202110, end: 2021

REACTIONS (1)
  - Heart rate increased [Recovered/Resolved]

NARRATIVE: CASE EVENT DATE: 20211001
